FAERS Safety Report 14386533 (Version 1)
Quarter: 2018Q1

REPORT INFORMATION
  Report Type: Spontaneous
  Country: US (occurrence: US)
  Receive Date: 20180115
  Receipt Date: 20180115
  Transmission Date: 20180509
  Serious: Yes (Other)
  Sender: FDA-Public Use
  Company Number: US-SA-2017SA149728

PATIENT
  Age: 54 Year
  Sex: Female
  Weight: 109.7 kg

DRUGS (12)
  1. XANAX [Concomitant]
     Active Substance: ALPRAZOLAM
     Route: 065
     Dates: start: 2016, end: 2016
  2. LISINOPRIL. [Concomitant]
     Active Substance: LISINOPRIL
     Dates: start: 2017, end: 2017
  3. XANAX [Concomitant]
     Active Substance: ALPRAZOLAM
     Route: 065
     Dates: start: 2015, end: 2015
  4. GLIPIZIDE. [Concomitant]
     Active Substance: GLIPIZIDE
     Route: 065
     Dates: start: 2015
  5. LISINOPRIL. [Concomitant]
     Active Substance: LISINOPRIL
     Dates: start: 2014, end: 2014
  6. TAXOTERE [Suspect]
     Active Substance: DOCETAXEL
     Indication: BREAST CANCER
     Dosage: 100 MG AND 500MG
     Route: 051
     Dates: start: 20141015, end: 20141015
  7. CYTOXAN [Concomitant]
     Active Substance: CYCLOPHOSPHAMIDE
  8. ZESTORETIC [Concomitant]
     Active Substance: HYDROCHLOROTHIAZIDE\LISINOPRIL
  9. TAXOTERE [Suspect]
     Active Substance: DOCETAXEL
     Indication: BREAST CANCER
     Route: 051
     Dates: start: 20150204, end: 20150204
  10. ANASTROZOLE. [Concomitant]
     Active Substance: ANASTROZOLE
     Route: 065
     Dates: start: 2015
  11. LYRICA [Concomitant]
     Active Substance: PREGABALIN
     Route: 065
     Dates: start: 2015, end: 2015
  12. ESCITALOPRAM [Concomitant]
     Active Substance: ESCITALOPRAM OXALATE
     Route: 065
     Dates: start: 2014

REACTIONS (2)
  - Alopecia [Not Recovered/Not Resolved]
  - Psychological trauma [Unknown]

NARRATIVE: CASE EVENT DATE: 201508
